FAERS Safety Report 7811230-0 (Version None)
Quarter: 2011Q4

REPORT INFORMATION
  Report Type: 
  Country: None (occurrence: None)
  Receive Date: 20111012
  Receipt Date: 20111012
  Transmission Date: 20120403
  Serious: Yes (Disabling)
  Sender: FDA-Public Use
  Company Number: None

PATIENT
  Age: 88 Year
  Sex: Male
  Weight: 96.1626 kg

DRUGS (2)
  1. TERAZOSIN HCL [Suspect]
     Indication: PROSTATIC SPECIFIC ANTIGEN
  2. ZOCOR [Suspect]
     Indication: ANGIOPLASTY
     Dosage: 20MG

REACTIONS (2)
  - OEDEMA PERIPHERAL [None]
  - JOINT SWELLING [None]
